FAERS Safety Report 19093639 (Version 1)
Quarter: 2021Q2

REPORT INFORMATION
  Report Type: Spontaneous
  Country: CA (occurrence: CA)
  Receive Date: 20210405
  Receipt Date: 20210405
  Transmission Date: 20210717
  Serious: Yes (Other)
  Sender: FDA-Public Use
  Company Number: CA-TEVA-2021-CA-1897444

PATIENT
  Age: 72 Year
  Sex: Female

DRUGS (5)
  1. OXALIPLATIN. [Suspect]
     Active Substance: OXALIPLATIN
     Indication: PANCREATIC CARCINOMA METASTATIC
     Route: 042
  2. FOLINIC ACID /00566702/ [Concomitant]
     Active Substance: LEUCOVORIN CALCIUM
  3. FLUOROURACIL. [Concomitant]
     Active Substance: FLUOROURACIL
  4. IRINOTECAN HYDROCHLORIDE. [Suspect]
     Active Substance: IRINOTECAN HYDROCHLORIDE
     Route: 042
  5. IRINOTECAN HYDROCHLORIDE. [Suspect]
     Active Substance: IRINOTECAN HYDROCHLORIDE
     Indication: PANCREATIC CARCINOMA
     Route: 042

REACTIONS (2)
  - Dysarthria [Recovered/Resolved]
  - Neuropathy peripheral [Recovered/Resolved]
